FAERS Safety Report 20439006 (Version 1)
Quarter: 2022Q1

REPORT INFORMATION
  Report Type: Spontaneous
  Country: US (occurrence: US)
  Receive Date: 20220207
  Receipt Date: 20220207
  Transmission Date: 20220423
  Serious: No
  Sender: FDA-Public Use
  Company Number: US-AMGEN-USASP2022016948

PATIENT
  Sex: Female

DRUGS (1)
  1. AVSOLA [Suspect]
     Active Substance: INFLIXIMAB-AXXQ
     Indication: Gastrointestinal disorder
     Dosage: UNK
     Route: 065
     Dates: start: 202112

REACTIONS (2)
  - Off label use [Unknown]
  - Urticaria [Unknown]

NARRATIVE: CASE EVENT DATE: 20211201
